FAERS Safety Report 20579947 (Version 1)
Quarter: 2022Q1

REPORT INFORMATION
  Report Type: Spontaneous
  Country: JP (occurrence: JP)
  Receive Date: 20220310
  Receipt Date: 20220310
  Transmission Date: 20220423
  Serious: Yes (Other)
  Sender: FDA-Public Use
  Company Number: JP-CELGENE-JPN-20220301783

PATIENT
  Age: 70 Year
  Sex: Male

DRUGS (4)
  1. ABRAXANE [Suspect]
     Active Substance: PACLITAXEL
     Indication: Pancreatic carcinoma
     Route: 041
  2. GEMCITABINE [Concomitant]
     Active Substance: GEMCITABINE
     Indication: Pancreatic carcinoma
     Route: 041
  3. CORTICOSTEROID (adrenal hormone preparations) [Concomitant]
     Indication: Prophylaxis of nausea and vomiting
     Route: 065
  4. CORTICOSTEROID (adrenal hormone preparations) [Concomitant]
     Indication: Premedication

REACTIONS (1)
  - Pneumocystis jirovecii pneumonia [Unknown]
